FAERS Safety Report 4908287-3 (Version None)
Quarter: 2006Q1

REPORT INFORMATION
  Report Type: 
  Country: None (occurrence: None)
  Receive Date: 20060210
  Receipt Date: 20060209
  Transmission Date: 20060701
  Serious: Yes (Death, Hospitalization, Other)
  Sender: FDA-Public Use
  Company Number: LS-BRISTOL-MYERS SQUIBB COMPANY-13276530

PATIENT
  Age: 54 Year
  Sex: Male

DRUGS (3)
  1. STAVUDINE [Suspect]
     Indication: HIV INFECTION
     Route: 048
     Dates: start: 20050914, end: 20050927
  2. LAMIVUDINE [Suspect]
     Indication: HIV INFECTION
     Route: 048
     Dates: start: 20050914, end: 20050927
  3. NEVIRAPINE [Suspect]
     Indication: HIV INFECTION
     Route: 048
     Dates: start: 20050914, end: 20050927

REACTIONS (10)
  - DIARRHOEA [None]
  - DYSURIA [None]
  - GINGIVAL PAIN [None]
  - HEPATOTOXICITY [None]
  - ORAL CANDIDIASIS [None]
  - PAIN IN EXTREMITY [None]
  - PNEUMONIA [None]
  - PULMONARY TUBERCULOSIS [None]
  - RENAL FAILURE [None]
  - VOMITING [None]
